FAERS Safety Report 15205588 (Version 7)
Quarter: 2019Q2

REPORT INFORMATION
  Report Type: Report from Study
  Country: None (occurrence: US)
  Receive Date: 20180726
  Receipt Date: 20190615
  Transmission Date: 20190711
  Serious: Yes (Hospitalization, Other)
  Sender: FDA-Public Use
  Company Number: US-ABBVIE-18K-163-2429290-00

PATIENT
  Age: 57 Year
  Sex: Female
  Weight: 90.8 kg

DRUGS (12)
  1. LORAZEPAM. [Concomitant]
     Active Substance: LORAZEPAM
     Indication: ANXIETY
  2. NORVASC [Concomitant]
     Active Substance: AMLODIPINE BESYLATE
     Indication: HYPERTENSION
  3. HUMIRA [Suspect]
     Active Substance: ADALIMUMAB
     Dosage: CITRATE FREE
     Route: 058
  4. PROPRANOLOL [Concomitant]
     Active Substance: PROPRANOLOL HYDROCHLORIDE
     Indication: HEART RATE INCREASED
  5. HUMIRA [Suspect]
     Active Substance: ADALIMUMAB
     Route: 058
     Dates: start: 2018
  6. BENICAR [Concomitant]
     Active Substance: OLMESARTAN MEDOXOMIL
     Indication: HYPERTENSION
  7. SIMVASTATIN. [Concomitant]
     Active Substance: SIMVASTATIN
     Indication: BLOOD CHOLESTEROL INCREASED
  8. RESTASIS [Suspect]
     Active Substance: CYCLOSPORINE
     Indication: DRY EYE
     Route: 065
  9. HUMIRA [Suspect]
     Active Substance: ADALIMUMAB
     Indication: RHEUMATOID ARTHRITIS
     Route: 058
     Dates: start: 201702, end: 2018
  10. FLU VACCINE VII [Suspect]
     Active Substance: INFLUENZA VIRUS VACCINE
     Indication: PRODUCT USED FOR UNKNOWN INDICATION
     Route: 065
     Dates: start: 20181015
  11. ESCITALOPRAM [Concomitant]
     Active Substance: ESCITALOPRAM OXALATE
     Indication: BLOOD CHOLESTEROL INCREASED
  12. TROKENDI XR [Concomitant]
     Active Substance: TOPIRAMATE
     Indication: MIGRAINE

REACTIONS (28)
  - Cataract [Unknown]
  - Increased upper airway secretion [Not Recovered/Not Resolved]
  - Tremor [Unknown]
  - Osteoarthritis [Unknown]
  - Allergy to vaccine [Unknown]
  - Intervertebral disc protrusion [Unknown]
  - Nodule [Unknown]
  - Fall [Recovered/Resolved]
  - Dermatitis contact [Unknown]
  - Dysstasia [Unknown]
  - Nasopharyngitis [Not Recovered/Not Resolved]
  - Mobility decreased [Not Recovered/Not Resolved]
  - Hypotension [Unknown]
  - Dry eye [Unknown]
  - Fall [Recovered/Resolved]
  - Balance disorder [Unknown]
  - Nodule [Unknown]
  - Foot fracture [Unknown]
  - Ankle fracture [Recovering/Resolving]
  - Rheumatoid nodule [Unknown]
  - Eye inflammation [Unknown]
  - Influenza [Unknown]
  - Spondylitis [Unknown]
  - Joint stiffness [Unknown]
  - Foot fracture [Unknown]
  - Vaccination site swelling [Unknown]
  - Contusion [Unknown]
  - Vaccination site warmth [Unknown]

NARRATIVE: CASE EVENT DATE: 2018
